FAERS Safety Report 25977893 (Version 1)
Quarter: 2025Q4

REPORT INFORMATION
  Report Type: Report from Study
  Country: US (occurrence: US)
  Receive Date: 20251030
  Receipt Date: 20251030
  Transmission Date: 20260118
  Serious: Yes (Other)
  Sender: JOHNSON AND JOHNSON
  Company Number: US-JNJFOC-20251037731

PATIENT
  Age: 60 Year
  Sex: Male

DRUGS (4)
  1. SPRAVATO [Suspect]
     Active Substance: ESKETAMINE
     Indication: Depression
     Dosage: ?84  MG, 32 TOTAL DOSES? (09-DEC-2024 ALSO REPORTED WITH 56 MG DOSE)
     Route: 045
     Dates: start: 20230608, end: 20250924
  2. SPRAVATO [Suspect]
     Active Substance: ESKETAMINE
     Dosage: ?84  MG, 1 TOTAL DOSES
     Route: 045
     Dates: start: 20251029, end: 20251029
  3. SPRAVATO [Suspect]
     Active Substance: ESKETAMINE
     Dosage: ?56 MG, 4 TOTAL DOSES?
     Route: 045
     Dates: start: 20230518, end: 20230530
  4. ADDERALL [Concomitant]
     Active Substance: AMPHETAMINE ASPARTATE\AMPHETAMINE SULFATE\DEXTROAMPHETAMINE SACCHARATE\DEXTROAMPHETAMINE SULFATE
     Indication: Product used for unknown indication
     Route: 065

REACTIONS (2)
  - Sedation [Recovered/Resolved]
  - Dissociation [Recovered/Resolved]

NARRATIVE: CASE EVENT DATE: 20251029
